FAERS Safety Report 6283601-8 (Version None)
Quarter: 2009Q3

REPORT INFORMATION
  Report Type: 
  Country: None (occurrence: None)
  Receive Date: 20090724
  Receipt Date: 20090428
  Transmission Date: 20100115
  Serious: No
  Sender: FDA-Public Use
  Company Number: US-ALEXION-A200900362

PATIENT
  Sex: Female

DRUGS (10)
  1. SOLIRIS [Suspect]
     Indication: PAROXYSMAL NOCTURNAL HAEMOGLOBINURIA
     Dosage: 600 MG, QWK
     Route: 042
     Dates: start: 20070502, end: 20070523
  2. SOLIRIS [Suspect]
     Dosage: 900 MG, Q2WK
     Route: 042
     Dates: start: 20070530
  3. ARANESP [Concomitant]
     Dosage: UNK
     Dates: start: 20090423
  4. PREDNISONE TAB [Concomitant]
     Dosage: UNK
     Route: 048
  5. FOLIC ACID [Concomitant]
     Dosage: UNK
     Route: 048
  6. OMEPRAZOLE [Concomitant]
     Dosage: UNK
     Route: 048
  7. CALCIUM [Concomitant]
     Dosage: UNK
     Route: 048
  8. GLUCOSAMINE [Concomitant]
     Dosage: UNK
     Route: 048
  9. CHONDROITIN [Concomitant]
     Dosage: UNK
     Route: 048
  10. EXJADE [Concomitant]
     Dosage: UNK

REACTIONS (2)
  - HAEMOGLOBIN DECREASED [None]
  - HAEMOLYSIS [None]
